FAERS Safety Report 5819755-4 (Version None)
Quarter: 2008Q3

REPORT INFORMATION
  Report Type: 
  Country: None (occurrence: None)
  Receive Date: 20080723
  Receipt Date: 20080711
  Transmission Date: 20090109
  Serious: Yes (Hospitalization)
  Sender: FDA-Public Use
  Company Number: PT-PFIZER INC-2008057549

PATIENT
  Sex: Female
  Weight: 70 kg

DRUGS (3)
  1. ZYVOXID [Suspect]
     Indication: CHOLANGITIS
     Route: 042
     Dates: start: 20080507, end: 20080525
  2. PIPERACILLIN SODIUM [Concomitant]
     Route: 042
     Dates: start: 20080507, end: 20080514
  3. TAZOBACTAM SODIUM [Concomitant]
     Route: 042
     Dates: start: 20080507, end: 20080514

REACTIONS (3)
  - DERMATITIS [None]
  - GENITAL TRACT INFLAMMATION [None]
  - VAGINAL INFLAMMATION [None]
